FAERS Safety Report 10096790 (Version 2)
Quarter: 2014Q2

REPORT INFORMATION
  Report Type: Report from Study
  Country: CA (occurrence: CA)
  Receive Date: 20140422
  Receipt Date: 20140422
  Transmission Date: 20141212
  Serious: Yes (Hospitalization)
  Sender: FDA-Public Use
  Company Number: CA-JNJFOC-20140407366

PATIENT
  Age: 61 Year
  Sex: Male
  Weight: 86 kg

DRUGS (3)
  1. REMICADE [Suspect]
     Indication: CROHN^S DISEASE
     Route: 042
     Dates: start: 20131104
  2. ENTOCORT [Concomitant]
     Route: 065
  3. CODEINE [Concomitant]
     Route: 065

REACTIONS (2)
  - Intestinal obstruction [Unknown]
  - Cardiac disorder [Unknown]
